FAERS Safety Report 9131004 (Version 3)
Quarter: 2013Q3

REPORT INFORMATION
  Report Type: Spontaneous
  Country: US (occurrence: US)
  Receive Date: 20130301
  Receipt Date: 20130909
  Transmission Date: 20140515
  Serious: Yes (Other)
  Sender: FDA-Public Use
  Company Number: US-BRISTOL-MYERS SQUIBB COMPANY-17404740

PATIENT
  Age: 26 Year
  Sex: Female
  Weight: 117.91 kg

DRUGS (1)
  1. ABILIFY TABS 10 MG [Suspect]
     Dosage: REFILL:LOT NO:2H82838, EXPRN DATE:AUG 2015
     Dates: start: 20130114

REACTIONS (2)
  - Hallucination [Unknown]
  - Drug ineffective [Unknown]
